FAERS Safety Report 15659869 (Version 7)
Quarter: 2019Q1

REPORT INFORMATION
  Report Type: Report from Study
  Country: JP (occurrence: JP)
  Receive Date: 20181127
  Receipt Date: 20190301
  Transmission Date: 20190417
  Serious: Yes (Hospitalization)
  Sender: FDA-Public Use
  Company Number: JP-ROCHE-2217304

PATIENT
  Age: 62 Year
  Sex: Male
  Weight: 77.7 kg

DRUGS (34)
  1. LOXOPROFEN [Concomitant]
     Active Substance: LOXOPROFEN
     Indication: RIB FRACTURE
     Route: 048
     Dates: start: 20181114, end: 20181116
  2. VITAMEDIN (JAPAN) [Concomitant]
     Dosage: 1 OTHER
     Route: 042
     Dates: start: 20181117, end: 20181117
  3. HEPARIN CALCIUM [Concomitant]
     Active Substance: HEPARIN CALCIUM
     Route: 042
     Dates: start: 20181117, end: 20181125
  4. CALBLOCK [Concomitant]
     Active Substance: AZELNIDIPINE
     Indication: HYPERTENSION
     Route: 048
     Dates: start: 20150601, end: 20181116
  5. CALBLOCK [Concomitant]
     Active Substance: AZELNIDIPINE
     Route: 048
     Dates: start: 20181229, end: 20190206
  6. REBAMIPIDE [Concomitant]
     Active Substance: REBAMIPIDE
     Indication: GASTRITIS
     Route: 048
     Dates: start: 20180606
  7. CARBOCISTEINE [Concomitant]
     Active Substance: CARBOCYSTEINE
     Indication: EMPYEMA
     Route: 048
     Dates: start: 201610, end: 20181112
  8. ZOLPIDEM TARTRATE. [Concomitant]
     Active Substance: ZOLPIDEM TARTRATE
     Indication: INSOMNIA
     Route: 048
     Dates: start: 20150721, end: 20181116
  9. RENIVACE [Concomitant]
     Active Substance: ENALAPRIL
     Indication: HYPERTENSION
     Route: 048
     Dates: start: 20180706, end: 20181116
  10. RENIVACE [Concomitant]
     Active Substance: ENALAPRIL
     Route: 048
     Dates: start: 20181127, end: 20181128
  11. CLAFORAN [Concomitant]
     Active Substance: CEFOTAXIME SODIUM
     Indication: PNEUMONIA
     Route: 042
     Dates: start: 20181122, end: 20181125
  12. SHINLUCK [Concomitant]
     Active Substance: SODIUM PICOSULFATE
     Indication: CONSTIPATION
     Route: 048
     Dates: start: 20181207, end: 20181207
  13. ATEZOLIZUMAB. [Suspect]
     Active Substance: ATEZOLIZUMAB
     Indication: HEPATIC CANCER
     Dosage: ON 24/OCT/2018, RECEIVED MOST RECENT DOSE OF ATEZOLIZUMAB PRIOR TO AE ONSET (DOSE: 1200 MG)
     Route: 042
     Dates: start: 20180530
  14. MAGNESIUM OXIDE. [Concomitant]
     Active Substance: MAGNESIUM OXIDE
     Indication: CONSTIPATION
     Route: 048
     Dates: start: 20181120
  15. ACELIO [Concomitant]
     Active Substance: ACETAMINOPHEN
     Indication: RIB FRACTURE
     Route: 042
     Dates: start: 20181119, end: 20181119
  16. CALONAL [Concomitant]
     Active Substance: ACETAMINOPHEN
     Indication: RIB FRACTURE
     Route: 048
     Dates: start: 20181119, end: 20181121
  17. CALBLOCK [Concomitant]
     Active Substance: AZELNIDIPINE
     Route: 048
     Dates: start: 20181127, end: 20181127
  18. RENIVACE [Concomitant]
     Active Substance: ENALAPRIL
     Route: 048
     Dates: start: 20181229, end: 20190206
  19. AZUNOL [Concomitant]
     Active Substance: SODIUM GUALENATE
     Route: 061
     Dates: start: 20181119, end: 20181119
  20. REBAMIPIDE [Concomitant]
     Active Substance: REBAMIPIDE
     Route: 048
     Dates: start: 20181114, end: 20181116
  21. AZELNIDIPINE [Concomitant]
     Active Substance: AZELNIDIPINE
     Indication: HYPERTENSION
     Route: 048
     Dates: start: 20181117, end: 20181122
  22. AZELNIDIPINE [Concomitant]
     Active Substance: AZELNIDIPINE
     Route: 048
     Dates: start: 20181123, end: 20181123
  23. KENEI G [Concomitant]
     Active Substance: GLYCERIN
     Indication: CONSTIPATION
     Route: 054
     Dates: start: 20181124, end: 20181124
  24. BROTIZOLAM [Concomitant]
     Active Substance: BROTIZOLAM
     Indication: INSOMNIA
     Route: 048
     Dates: start: 20150428, end: 20181116
  25. RENIVACE [Concomitant]
     Active Substance: ENALAPRIL
     Route: 048
     Dates: start: 20181129, end: 20181228
  26. SENNOSIDE [Concomitant]
     Active Substance: SENNOSIDES
     Indication: CONSTIPATION
     Route: 048
     Dates: start: 20180727
  27. GENTAMICIN SULFATE. [Concomitant]
     Active Substance: GENTAMICIN SULFATE
     Indication: CONTUSION
     Route: 061
     Dates: start: 20181123, end: 20181123
  28. SOLACET F [Concomitant]
     Route: 042
     Dates: start: 20181117, end: 20181122
  29. BEVACIZUMAB. [Suspect]
     Active Substance: BEVACIZUMAB
     Indication: HEPATIC CANCER
     Dosage: ON 24/OCT/2018, RECEIVED MOST RECENT DOSE OF BEVACIZUMAB PRIOR TO AE ONSET (DOSE: 15 MG/KG)
     Route: 042
     Dates: start: 20180530
  30. CALBLOCK [Concomitant]
     Active Substance: AZELNIDIPINE
     Indication: HYPERTENSION
     Route: 048
     Dates: start: 20181201, end: 20181228
  31. LOXOPROFEN [Concomitant]
     Active Substance: LOXOPROFEN
     Indication: HEADACHE
     Route: 048
     Dates: start: 20180606, end: 20181113
  32. LOXOPROFEN [Concomitant]
     Active Substance: LOXOPROFEN
     Route: 048
     Dates: start: 20181121
  33. ENALAPRIL M [Concomitant]
     Indication: HYPERTENSION
     Route: 048
     Dates: start: 20181120, end: 20181126
  34. LAGNOS [Concomitant]
     Route: 048
     Dates: start: 20181123, end: 20181123

REACTIONS (1)
  - Dizziness [Recovering/Resolving]

NARRATIVE: CASE EVENT DATE: 20181110
